FAERS Safety Report 4773523-3 (Version None)
Quarter: 2005Q3

REPORT INFORMATION
  Report Type: 
  Country: None (occurrence: None)
  Receive Date: 20050920
  Receipt Date: 20050909
  Transmission Date: 20060218
  Serious: Yes (Other)
  Sender: FDA-Public Use
  Company Number: 2005UW13511

PATIENT
  Age: 41 Year
  Sex: Female

DRUGS (7)
  1. TAMOXIFEN CITRATE [Suspect]
     Indication: BREAST CANCER
     Route: 048
     Dates: start: 20030609, end: 20040401
  2. ARIMIDEX [Suspect]
     Indication: BREAST CANCER
     Route: 048
     Dates: start: 20040501
  3. GARDENAL [Concomitant]
     Indication: EPILEPSY
     Route: 048
  4. DIAZEPAM [Concomitant]
     Indication: NERVOUSNESS
     Route: 048
  5. DIAZEPAM [Concomitant]
     Indication: HALLUCINATION
     Route: 048
  6. HALDOL [Concomitant]
     Indication: NERVOUSNESS
     Route: 048
  7. NIOFLUXETIN [Concomitant]
     Indication: NERVOUSNESS
     Route: 048

REACTIONS (7)
  - ABDOMINAL PAIN [None]
  - ANAL HAEMORRHAGE [None]
  - CONSTIPATION [None]
  - DISEASE PROGRESSION [None]
  - DIZZINESS [None]
  - RENAL FAILURE [None]
  - TACHYCARDIA [None]
